FAERS Safety Report 24744698 (Version 1)
Quarter: 2024Q4

REPORT INFORMATION
  Report Type: Spontaneous
  Country: US (occurrence: US)
  Receive Date: 20241217
  Receipt Date: 20241217
  Transmission Date: 20250115
  Serious: Yes (Death, Other)
  Sender: AMGEN
  Company Number: US-AMGEN-USASP2024244507

PATIENT

DRUGS (4)
  1. FILGRASTIM [Suspect]
     Active Substance: FILGRASTIM
     Indication: Product used for unknown indication
     Dosage: UNK (FROM DAY +7 UNTIL NEUTROPHIL ENGRAFTMENT)
     Route: 065
  2. CLOFARABINE [Concomitant]
     Active Substance: CLOFARABINE
     Indication: Haematological malignancy
     Dosage: UNK
  3. MELPHALAN [Concomitant]
     Active Substance: MELPHALAN
     Indication: Haematological malignancy
     Dosage: 70 MILLIGRAM/SQ. METER (DOSE X 2)
  4. THIOTEPA [Concomitant]
     Active Substance: THIOTEPA
     Indication: Haematological malignancy
     Dosage: 10 MILLIGRAM/SQ. METER

REACTIONS (1)
  - Haematological malignancy [Fatal]
